FAERS Safety Report 6551062-7 (Version None)
Quarter: 2010Q1

REPORT INFORMATION
  Report Type: 
  Country: None (occurrence: None)
  Receive Date: 20100122
  Receipt Date: 20100122
  Transmission Date: 20100710
  Serious: Yes (Other)
  Sender: FDA-Public Use
  Company Number: None

PATIENT
  Sex: Male
  Weight: 113.3993 kg

DRUGS (9)
  1. LOVAZA [Suspect]
     Indication: HYPERTRIGLYCERIDAEMIA
     Dosage: 2GM DAILY PO
     Route: 048
     Dates: start: 20091115, end: 20100112
  2. BYSTOLIC [Concomitant]
  3. NIASPAN [Concomitant]
  4. VYTORIN [Concomitant]
  5. TRILIPIX [Concomitant]
  6. VITAMIN D [Concomitant]
  7. ASPIRIN [Concomitant]
  8. CO-Q-10 [Concomitant]
  9. MULTI-VITAMIN [Concomitant]

REACTIONS (1)
  - ARRHYTHMIA [None]
